FAERS Safety Report 16521554 (Version 6)
Quarter: 2019Q4

REPORT INFORMATION
  Report Type: Spontaneous
  Country: DE (occurrence: DE)
  Receive Date: 20190702
  Receipt Date: 20191206
  Transmission Date: 20200122
  Serious: Yes (Life-Threatening, Hospitalization, Other)
  Sender: FDA-Public Use
  Company Number: DE-MYLANLABS-2019M1061285

PATIENT
  Age: 58 Year
  Sex: Male
  Weight: 94 kg

DRUGS (28)
  1. VALSARTAN. [Suspect]
     Active Substance: VALSARTAN
     Dosage: 1 DOSAGE FORM
     Route: 048
  2. VALSARTAN. [Suspect]
     Active Substance: VALSARTAN
     Dosage: 160 MILLIGRAM, QD
     Route: 048
  3. VALSARTAN. [Suspect]
     Active Substance: VALSARTAN
     Indication: HYPERTENSION
     Dosage: 320 MILLIGRAM, QD
     Route: 048
  4. MOVICOL [Concomitant]
     Active Substance: POLYETHYLENE GLYCOL 3350\POTASSIUM CHLORIDE\SODIUM BICARBONATE\SODIUM CHLORIDE
     Dosage: 2 UNK, QD, BID
     Route: 065
  5. METOPROLOL. [Concomitant]
     Active Substance: METOPROLOL
     Indication: HYPERTENSION
     Dosage: 95 MILLIGRAM, QD (47.5 MG, BID )
     Route: 065
     Dates: start: 201510
  6. VALSARTAN. [Suspect]
     Active Substance: VALSARTAN
     Indication: HYPERTENSION
     Dosage: 320 MILLIGRAM, QD
     Route: 065
     Dates: start: 201412
  7. MOVICOL [Concomitant]
     Active Substance: POLYETHYLENE GLYCOL 3350\POTASSIUM CHLORIDE\SODIUM BICARBONATE\SODIUM CHLORIDE
     Indication: PRODUCT USED FOR UNKNOWN INDICATION
     Dosage: UNK UNK, BID
  8. PANTOPRAZOLE [Concomitant]
     Active Substance: PANTOPRAZOLE
     Indication: PRODUCT USED FOR UNKNOWN INDICATION
     Dosage: 20 MILLIGRAM, QD
     Route: 065
  9. MOXONIDIN [Concomitant]
     Active Substance: MOXONIDINE
     Dosage: 0.4 OT, QD, 1
     Dates: start: 201706
  10. VALSARTAN. [Suspect]
     Active Substance: VALSARTAN
     Indication: HYPERTENSION
     Dosage: 160 MG, QD
     Route: 065
     Dates: start: 201412
  11. VALSARTAN. [Suspect]
     Active Substance: VALSARTAN
     Dosage: 160 MILLIGRAM
     Route: 065
     Dates: start: 201412
  12. AMLODIPIN                          /00972401/ [Concomitant]
     Active Substance: AMLODIPINE BESYLATE
     Dosage: 5 MILLIGRAM, QD,5 UNK
     Route: 065
  13. RIOPAN                             /00141701/ [Concomitant]
     Active Substance: MAGALDRATE
     Indication: PRODUCT USED FOR UNKNOWN INDICATION
     Dosage: 3 UNK, QD,TID
     Route: 048
  14. MULTI VITAMIN                      /09373601/ [Concomitant]
     Indication: PRODUCT USED FOR UNKNOWN INDICATION
     Dosage: UNK
  15. MOXONIDIN [Concomitant]
     Active Substance: MOXONIDINE
     Indication: HYPERTENSION
     Dosage: 0.4 MILLIGRAM, QD
     Route: 065
     Dates: start: 2014
  16. VALSARTAN. [Suspect]
     Active Substance: VALSARTAN
     Dosage: 160 MILLIGRAM, QD
     Route: 065
     Dates: start: 201510
  17. AMLODIPIN                          /00972401/ [Concomitant]
     Active Substance: AMLODIPINE BESYLATE
     Indication: HYPERTENSION
     Dosage: 10 MILLIGRAM, QD
     Route: 048
     Dates: start: 201412
  18. VALSARTAN. [Suspect]
     Active Substance: VALSARTAN
     Dosage: 160 MILLIGRAM
     Route: 065
     Dates: start: 20151013, end: 20161205
  19. VALSARTAN. [Suspect]
     Active Substance: VALSARTAN
     Dosage: 320 MILLIGRAM, QD
     Route: 065
     Dates: start: 20161206, end: 201809
  20. EXFORGE [Suspect]
     Active Substance: AMLODIPINE BESYLATE\VALSARTAN
     Indication: HYPERTENSION
     Dosage: 160 MILLIGRAM, QD
     Route: 065
     Dates: start: 201509
  21. NEPRESOL                           /00017903/ [Concomitant]
     Active Substance: DIHYDRALAZINE MESYLATE
     Indication: PRODUCT USED FOR UNKNOWN INDICATION
     Dosage: 25 MILLIGRAM, QD
     Route: 048
     Dates: start: 201706
  22. VALSARTAN. [Suspect]
     Active Substance: VALSARTAN
     Dosage: 320 MILLIGRAM, QD
     Route: 065
     Dates: start: 20161206, end: 201809
  23. VALSARTAN. [Suspect]
     Active Substance: VALSARTAN
     Dosage: 160 MG, QD
     Route: 065
     Dates: start: 20151013, end: 20161205
  24. VALSARTAN. [Suspect]
     Active Substance: VALSARTAN
     Dosage: 1 UNK, QD
     Route: 048
  25. VALSARTAN. [Suspect]
     Active Substance: VALSARTAN
     Dosage: 160 MILLIGRAM
     Route: 048
  26. METOPROLOL. [Concomitant]
     Active Substance: METOPROLOL
     Dosage: 47.5 MILLIGRAM, QD, 47.5 UNK
     Route: 065
     Dates: start: 2010
  27. VALSARTAN. [Suspect]
     Active Substance: VALSARTAN
     Dosage: 80 MILLIGRAM, QD
     Route: 048
  28. PANTOZOL [Concomitant]
     Active Substance: PANTOPRAZOLE SODIUM
     Indication: PRODUCT USED FOR UNKNOWN INDICATION
     Dosage: 80 MILLIGRAM, QD (40 MG , BID)
     Route: 048

REACTIONS (51)
  - Blood cholinesterase decreased [Unknown]
  - Renal cell carcinoma [Recovering/Resolving]
  - Myocarditis [Unknown]
  - Fatigue [Unknown]
  - Basophil percentage decreased [Unknown]
  - Specific gravity urine decreased [Unknown]
  - Blood chloride increased [Unknown]
  - Spinal subarachnoid haemorrhage [Unknown]
  - Pyrexia [Unknown]
  - Urinary tract infection [Unknown]
  - Erythroblast count decreased [Unknown]
  - Eosinophil percentage decreased [Unknown]
  - Neutrophil percentage increased [Unknown]
  - White blood cell count increased [Recovering/Resolving]
  - Benign prostatic hyperplasia [Unknown]
  - Gastroenteritis [Unknown]
  - Pain in extremity [Unknown]
  - Osteochondrosis [Unknown]
  - Haemoglobin decreased [Unknown]
  - Activated partial thromboplastin time shortened [Unknown]
  - Monocyte count increased [Unknown]
  - Gastritis [Unknown]
  - N-terminal prohormone brain natriuretic peptide increased [Unknown]
  - Gastrointestinal infection [Unknown]
  - Tachycardia [Unknown]
  - Gastric disorder [Unknown]
  - Palpitations [Unknown]
  - Bone marrow oedema [Unknown]
  - Haematocrit decreased [Unknown]
  - Condition aggravated [Unknown]
  - Prostatitis [Unknown]
  - Red blood cell count decreased [Recovering/Resolving]
  - Sciatica [Unknown]
  - Periostitis [Unknown]
  - Gallbladder cholesterolosis [Unknown]
  - Gastrooesophageal reflux disease [Unknown]
  - Oedematous kidney [Unknown]
  - Oedema peripheral [Unknown]
  - Acute coronary syndrome [Unknown]
  - Bursitis [Unknown]
  - Renal cyst [Unknown]
  - Blood creatinine increased [Unknown]
  - Vomiting [Unknown]
  - Renal mass [Unknown]
  - Glomerular filtration rate decreased [Unknown]
  - C-reactive protein increased [Unknown]
  - Encephalitis viral [Unknown]
  - Plantar fasciitis [Unknown]
  - Meningeal disorder [Unknown]
  - Face oedema [Unknown]
  - Blood urea increased [Recovering/Resolving]

NARRATIVE: CASE EVENT DATE: 201412
